FAERS Safety Report 5635925-2 (Version None)
Quarter: 2008Q1

REPORT INFORMATION
  Report Type: 
  Country: None (occurrence: None)
  Receive Date: 20080224
  Receipt Date: 20080214
  Transmission Date: 20080703
  Serious: Yes (Other)
  Sender: FDA-Public Use
  Company Number: PHHY2008JP01792

PATIENT
  Sex: Female

DRUGS (1)
  1. RITALIN [Suspect]
     Indication: DEPRESSION
     Dosage: 10 MG, QID

REACTIONS (2)
  - BEDRIDDEN [None]
  - SUICIDAL IDEATION [None]
